FAERS Safety Report 11942969 (Version 1)
Quarter: 2016Q1

REPORT INFORMATION
  Report Type: Spontaneous
  Country: US (occurrence: US)
  Receive Date: 20160125
  Receipt Date: 20160125
  Transmission Date: 20160526
  Serious: Yes (Life-Threatening, Hospitalization, Other)
  Sender: FDA-Public Use
  Company Number: US-ACCORD-037247

PATIENT
  Age: 73 Year
  Sex: Female

DRUGS (2)
  1. ERLOTINIB/ERLOTINIB HYDROCHLORIDE [Suspect]
     Active Substance: ERLOTINIB HYDROCHLORIDE
     Indication: LUNG ADENOCARCINOMA METASTATIC
  2. GEMCITABINE/GEMCITABINE HYDROCHLORIDE [Suspect]
     Active Substance: GEMCITABINE\GEMCITABINE HYDROCHLORIDE
     Indication: LUNG ADENOCARCINOMA METASTATIC

REACTIONS (3)
  - Corynebacterium infection [Recovering/Resolving]
  - Herpes zoster [Recovered/Resolved]
  - Organising pneumonia [Recovering/Resolving]
